FAERS Safety Report 6704113-0 (Version None)
Quarter: 2010Q2

REPORT INFORMATION
  Report Type: 
  Country: None (occurrence: None)
  Receive Date: 20100430
  Receipt Date: 20100421
  Transmission Date: 20101027
  Serious: Yes (Other)
  Sender: FDA-Public Use
  Company Number: US-JNJFOC-20100405847

PATIENT
  Age: 69 Year
  Sex: Female
  Weight: 142.88 kg

DRUGS (13)
  1. EXTRA STRENGTH TYLENOL [Suspect]
     Indication: ARTHRALGIA
     Dosage: 1000 MG ALTERNATING GELCAPS WITH CAPLETS EVERY 6 HOURS
     Route: 048
  2. EXTRA STRENGTH TYLENOL [Suspect]
     Indication: ARTHRITIS
     Dosage: 1000 MG ALTERNATING GELCAPS WITH CAPLETS EVERY 6 HOURS
     Route: 048
  3. EXTRA STRENGTH TYLENOL [Suspect]
     Indication: ARTHRALGIA
     Dosage: 1000 MG ALTERNATING GELCAPS WITH CAPLETS EVERY 6 HOURS
  4. EXTRA STRENGTH TYLENOL [Suspect]
     Indication: ARTHRITIS
     Dosage: 1000 MG ALTERNATING GELCAPS WITH CAPLETS EVERY 6 HOURS
  5. LISINOPRIL [Concomitant]
     Indication: HYPERTENSION
  6. CALCIUM WITH VITAMIN D [Concomitant]
     Indication: MEDICAL DIET
     Dosage: AS DIRECTED
  7. ASPIRIN [Concomitant]
     Indication: CARDIOVASCULAR EVENT PROPHYLAXIS
  8. FUROSEMIDE [Concomitant]
     Indication: FLUID RETENTION
  9. CENTRUM SILVER [Concomitant]
     Indication: VITAMIN SUPPLEMENTATION
  10. LEVOXYL [Concomitant]
     Indication: HYPOTHYROIDISM
  11. METOPROLOL [Concomitant]
     Indication: HYPERTENSION
  12. SIMVASTATIN [Concomitant]
     Indication: BLOOD CHOLESTEROL INCREASED
  13. VALIUM [Concomitant]
     Indication: RESTLESS LEGS SYNDROME

REACTIONS (6)
  - ABDOMINAL PAIN [None]
  - ABDOMINAL PAIN UPPER [None]
  - HEADACHE [None]
  - NAUSEA [None]
  - PRODUCT QUALITY ISSUE [None]
  - VOMITING [None]
